FAERS Safety Report 9883223 (Version 1)
Quarter: 2014Q1

REPORT INFORMATION
  Report Type: Spontaneous
  Country: IT (occurrence: IT)
  Receive Date: 20140208
  Receipt Date: 20140208
  Transmission Date: 20141002
  Serious: Yes (Life-Threatening)
  Sender: FDA-Public Use
  Company Number: IT-MYLANLABS-2014S1002257

PATIENT
  Age: 26 Year
  Sex: Female

DRUGS (1)
  1. LEVETIRACETAM [Suspect]
     Indication: EPILEPSY
     Dosage: 500 MG DAILY
     Route: 048
     Dates: start: 20100103, end: 20100103

REACTIONS (1)
  - Hypersensitivity [Recovered/Resolved]
